FAERS Safety Report 18981330 (Version 1)
Quarter: 2021Q1

REPORT INFORMATION
  Report Type: Other
  Country: US (occurrence: US)
  Receive Date: 20210308
  Receipt Date: 20210308
  Transmission Date: 20210420
  Serious: No
  Sender: FDA-Public Use
  Company Number: US-NEXGEN PHARMA, INC.-2107702

PATIENT
  Age: 57 Year
  Sex: Male

DRUGS (1)
  1. CHENODAL [Suspect]
     Active Substance: CHENODIOL
     Indication: XANTHOMATOSIS
     Route: 048

REACTIONS (1)
  - Hepatic enzyme increased [Recovered/Resolved]
